FAERS Safety Report 16511598 (Version 2)
Quarter: 2019Q3

REPORT INFORMATION
  Report Type: Spontaneous
  Country: NL (occurrence: NL)
  Receive Date: 20190702
  Receipt Date: 20190712
  Transmission Date: 20191004
  Serious: No
  Sender: FDA-Public Use
  Company Number: NL-BEH-2019103614

PATIENT
  Age: 24 Year
  Sex: Female

DRUGS (8)
  1. RHOPHYLAC [Suspect]
     Active Substance: HUMAN RHO(D) IMMUNE GLOBULIN
     Indication: ABORTION SPONTANEOUS
  2. RHOPHYLAC [Suspect]
     Active Substance: HUMAN RHO(D) IMMUNE GLOBULIN
     Indication: RHESUS ANTIBODIES NEGATIVE
  3. RHOPHYLAC [Suspect]
     Active Substance: HUMAN RHO(D) IMMUNE GLOBULIN
     Indication: RHESUS INCOMPATIBILITY
  4. RHOPHYLAC [Suspect]
     Active Substance: HUMAN RHO(D) IMMUNE GLOBULIN
     Indication: PREGNANCY
     Dosage: 1000 INTERNATIONAL UNIT, SINGLE
     Route: 030
     Dates: start: 20190530, end: 20190530
  5. RHOPHYLAC [Suspect]
     Active Substance: HUMAN RHO(D) IMMUNE GLOBULIN
     Indication: ABORTION SPONTANEOUS
  6. RHOPHYLAC [Suspect]
     Active Substance: HUMAN RHO(D) IMMUNE GLOBULIN
     Indication: PREGNANCY
     Dosage: 1000 INTERNATIONAL UNIT, SINGLE
     Route: 030
     Dates: start: 20190530, end: 20190530
  7. RHOPHYLAC [Suspect]
     Active Substance: HUMAN RHO(D) IMMUNE GLOBULIN
     Indication: RHESUS ANTIBODIES NEGATIVE
  8. RHOPHYLAC [Suspect]
     Active Substance: HUMAN RHO(D) IMMUNE GLOBULIN
     Indication: RHESUS INCOMPATIBILITY

REACTIONS (2)
  - No adverse event [Unknown]
  - Expired product administered [Unknown]
